FAERS Safety Report 8171199-9 (Version None)
Quarter: 2012Q1

REPORT INFORMATION
  Report Type: 
  Country: None (occurrence: None)
  Receive Date: 20120228
  Receipt Date: 20111223
  Transmission Date: 20120608
  Serious: No
  Sender: FDA-Public Use
  Company Number: US-BRISTOL-MYERS SQUIBB COMPANY-16318032

PATIENT

DRUGS (2)
  1. KOMBIGLYZE XR [Suspect]
  2. ONGLYZA [Suspect]

REACTIONS (1)
  - LIPASE INCREASED [None]
